FAERS Safety Report 7170270-8 (Version None)
Quarter: 2010Q4

REPORT INFORMATION
  Report Type: 
  Country: None (occurrence: None)
  Receive Date: 20101217
  Receipt Date: 20101206
  Transmission Date: 20110411
  Serious: Yes (Other)
  Sender: FDA-Public Use
  Company Number: US-PFIZER INC-2010090279

PATIENT
  Sex: Male
  Weight: 88 kg

DRUGS (1)
  1. LYRICA [Suspect]
     Indication: NERVE INJURY
     Dosage: UNK
     Route: 048
     Dates: start: 20080101, end: 20081201

REACTIONS (6)
  - DEPRESSION [None]
  - DIZZINESS [None]
  - DRUG DEPENDENCE [None]
  - PRURITUS [None]
  - RASH [None]
  - SWELLING [None]
